FAERS Safety Report 9501082 (Version 1)
Quarter: 2013Q3

REPORT INFORMATION
  Report Type: Spontaneous
  Country: US (occurrence: US)
  Receive Date: 20130905
  Receipt Date: 20130905
  Transmission Date: 20140515
  Serious: Yes (Hospitalization)
  Sender: FDA-Public Use
  Company Number: US-COVIDIEN/TYCO HEALTHCARE/MALLINCKRODT-T201304232

PATIENT
  Age: 40 Year
  Sex: Female

DRUGS (1)
  1. GABLOFEN [Suspect]
     Indication: MUSCLE SPASTICITY
     Dosage: 425 MCG PER DAY
     Route: 037

REACTIONS (8)
  - Overdose [Unknown]
  - Underdose [Unknown]
  - Sepsis [Unknown]
  - Decubitus ulcer [Unknown]
  - Altered state of consciousness [Unknown]
  - Mental status changes [Unknown]
  - Hallucination [Unknown]
  - Agitation [Unknown]
